FAERS Safety Report 9470512 (Version 1)
Quarter: 2013Q3

REPORT INFORMATION
  Report Type: Spontaneous
  Country: DE (occurrence: DE)
  Receive Date: 20130822
  Receipt Date: 20130822
  Transmission Date: 20140515
  Serious: Yes (Life-Threatening)
  Sender: FDA-Public Use
  Company Number: DE-JNJFOC-20130810740

PATIENT
  Age: 61 Year
  Sex: 0

DRUGS (4)
  1. XARELTO [Suspect]
     Indication: CEREBROVASCULAR ACCIDENT PROPHYLAXIS
     Route: 048
  2. XARELTO [Suspect]
     Indication: ATRIAL FIBRILLATION
     Route: 048
  3. CLOPIDOGREL [Interacting]
     Indication: ANGIOGRAM
     Route: 065
  4. ASS [Interacting]
     Indication: ANGIOGRAM
     Route: 065

REACTIONS (3)
  - Cerebral haemorrhage [Unknown]
  - Visual impairment [Unknown]
  - Drug interaction [Unknown]
